FAERS Safety Report 17839344 (Version 3)
Quarter: 2020Q4

REPORT INFORMATION
  Report Type: Spontaneous
  Country: JP (occurrence: JP)
  Receive Date: 20200529
  Receipt Date: 20201224
  Transmission Date: 20210113
  Serious: Yes (Death, Other)
  Sender: FDA-Public Use
  Company Number: JP-ALEXION PHARMACEUTICALS INC.-A202007168

PATIENT
  Age: 36 Year
  Sex: Male
  Weight: 68 kg

DRUGS (1)
  1. SOLIRIS [Suspect]
     Active Substance: ECULIZUMAB
     Indication: ATYPICAL HAEMOLYTIC URAEMIC SYNDROME
     Dosage: 180 MG, QW
     Route: 042
     Dates: start: 20200427, end: 20200430

REACTIONS (3)
  - Arrhythmia supraventricular [Fatal]
  - Cardiac failure [Fatal]
  - Multiple organ dysfunction syndrome [Fatal]
